FAERS Safety Report 25745651 (Version 3)
Quarter: 2025Q4

REPORT INFORMATION
  Report Type: Spontaneous
  Country: EU (occurrence: EU)
  Receive Date: 20250901
  Receipt Date: 20251115
  Transmission Date: 20260117
  Serious: Yes (Hospitalization, Other)
  Sender: AUROBINDO
  Company Number: EU-EMA-DD-20250818-7482663-121614

PATIENT
  Age: 27 Year
  Sex: Male

DRUGS (2)
  1. PREGABALIN [Suspect]
     Active Substance: PREGABALIN
     Indication: Product used for unknown indication
     Dosage: 2500 MILLIGRAM, ONCE A DAY
     Route: 048
     Dates: start: 2020
  2. COCAINE [Concomitant]
     Active Substance: COCAINE
     Indication: Product used for unknown indication
     Dosage: UNK
     Route: 065

REACTIONS (13)
  - Drug dependence [Unknown]
  - Decreased appetite [Unknown]
  - Parasomnia [Unknown]
  - Nightmare [Unknown]
  - Dry mouth [Unknown]
  - Back pain [Unknown]
  - Hyperhidrosis [Unknown]
  - Headache [Unknown]
  - Drug use disorder [Unknown]
  - Insomnia [Unknown]
  - Withdrawal syndrome [Unknown]
  - Overdose [Unknown]
  - Intentional overdose [Unknown]

NARRATIVE: CASE EVENT DATE: 20200101
